FAERS Safety Report 8730120 (Version 2)
Quarter: 2015Q3

REPORT INFORMATION
  Report Type: Report from Study
  Country: US (occurrence: US)
  Receive Date: 20120817
  Receipt Date: 20150911
  Transmission Date: 20151125
  Serious: Yes (Other)
  Sender: FDA-Public Use
  Company Number: US-ROCHE-1101556

PATIENT
  Sex: Male

DRUGS (4)
  1. ACTIVASE [Suspect]
     Active Substance: ALTEPLASE
     Indication: ACUTE MYOCARDIAL INFARCTION
     Route: 065
  2. ATROPINE. [Concomitant]
     Active Substance: ATROPINE
     Dosage: HALF MG
     Route: 065
  3. LIDOCAINE. [Concomitant]
     Active Substance: LIDOCAINE
     Route: 040
  4. NITROGLYCERIN. [Concomitant]
     Active Substance: NITROGLYCERIN

REACTIONS (5)
  - Hypotension [Unknown]
  - Chest pain [Unknown]
  - Retching [Unknown]
  - Blood creatine phosphokinase increased [Unknown]
  - Bradycardia [Unknown]
